FAERS Safety Report 4656068-0 (Version None)
Quarter: 2005Q2

REPORT INFORMATION
  Report Type: 
  Country: None (occurrence: None)
  Receive Date: 20050504
  Receipt Date: 20050414
  Transmission Date: 20051028
  Serious: Yes (Hospitalization)
  Sender: FDA-Public Use
  Company Number: 603487

PATIENT
  Age: 54 Year
  Sex: Female

DRUGS (1)
  1. FIBRIN SEALANT TISSEEL VH KIT [Suspect]
     Dates: start: 20050308

REACTIONS (7)
  - CONFUSIONAL STATE [None]
  - CSF GRANULOCYTE COUNT ABNORMAL [None]
  - CSF TEST ABNORMAL [None]
  - HEADACHE [None]
  - INFLAMMATION [None]
  - LETHARGY [None]
  - PYREXIA [None]
